FAERS Safety Report 9762015 (Version 1)
Quarter: 2013Q4

REPORT INFORMATION
  Report Type: Spontaneous
  Country: US (occurrence: US)
  Receive Date: 20131216
  Receipt Date: 20131216
  Transmission Date: 20140711
  Serious: No
  Sender: FDA-Public Use
  Company Number: US-BIOGENIDEC-2013BI103932

PATIENT
  Sex: Female

DRUGS (6)
  1. TECFIDERA [Suspect]
     Indication: MULTIPLE SCLEROSIS
     Dates: start: 20130729
  2. VITAMIN D3 [Concomitant]
  3. VITAMIN C [Concomitant]
  4. VITAMIN B12 [Concomitant]
  5. ADDERALL [Concomitant]
  6. LEXAPRO [Concomitant]

REACTIONS (1)
  - Dyspnoea [Unknown]
